FAERS Safety Report 6081230-2 (Version None)
Quarter: 2009Q1

REPORT INFORMATION
  Report Type: 
  Country: None (occurrence: None)
  Receive Date: 20090213
  Receipt Date: 20081110
  Transmission Date: 20090719
  Serious: Yes (Hospitalization)
  Sender: FDA-Public Use
  Company Number: ADE# 08-184

PATIENT
  Sex: Female
  Weight: 46.2669 kg

DRUGS (3)
  1. DIGOXIN [Suspect]
     Indication: HEART RATE INCREASED
     Dosage: ONE TABLET DAILY
     Dates: start: 20081001
  2. COUMADIN [Concomitant]
  3. AMIODARONE [Concomitant]

REACTIONS (2)
  - ASTHENIA [None]
  - WEIGHT DECREASED [None]
